FAERS Safety Report 13219295 (Version 1)
Quarter: 2017Q1

REPORT INFORMATION
  Report Type: Spontaneous
  Country: US (occurrence: US)
  Receive Date: 20170210
  Receipt Date: 20170210
  Transmission Date: 20170428
  Serious: Yes (Hospitalization, Other)
  Sender: FDA-Public Use
  Company Number: US-AUROBINDO-AUR-APL-2016-12784

PATIENT
  Age: 18 Year
  Sex: Female

DRUGS (3)
  1. MINOCYCLINE [Suspect]
     Active Substance: MINOCYCLINE\MINOCYCLINE HYDROCHLORIDE
     Indication: FOLLICULITIS
     Dosage: 100 MG, TWO TIMES A DAY
     Route: 065
  2. PREDNISONE. [Suspect]
     Active Substance: PREDNISONE
  3. AMOXICILLIN. [Suspect]
     Active Substance: AMOXICILLIN
     Indication: PHARYNGITIS
     Dosage: UNK
     Route: 065

REACTIONS (15)
  - Rash pustular [Recovered/Resolved]
  - Peripheral swelling [Recovered/Resolved]
  - Lip swelling [Recovered/Resolved]
  - Chills [Recovered/Resolved]
  - Swelling face [Recovered/Resolved]
  - Drug reaction with eosinophilia and systemic symptoms [Recovered/Resolved]
  - Infectious mononucleosis [Recovered/Resolved]
  - Rash [Recovered/Resolved]
  - Proteinuria [Recovered/Resolved]
  - Fatigue [Recovered/Resolved]
  - C-reactive protein increased [Recovered/Resolved]
  - Red blood cell sedimentation rate increased [Recovered/Resolved]
  - Pyrexia [Recovered/Resolved]
  - Rash maculo-papular [Recovered/Resolved]
  - Rash pruritic [Recovered/Resolved]
